FAERS Safety Report 5988122-5 (Version None)
Quarter: 2008Q4

REPORT INFORMATION
  Report Type: 
  Country: None (occurrence: None)
  Receive Date: 20081209
  Receipt Date: 20081209
  Transmission Date: 20090506
  Serious: No
  Sender: FDA-Public Use
  Company Number: None

PATIENT
  Sex: Male
  Weight: 92.9874 kg

DRUGS (8)
  1. FENTANYL-100 [Suspect]
     Indication: PAIN
     Dosage: 100 MCG ONE PATCH Q48
     Dates: start: 20080201
  2. OXYCONTIN [Concomitant]
  3. ROXANOL [Concomitant]
  4. PREDNISONE TAB [Concomitant]
  5. ZOCOR [Concomitant]
  6. LASIX [Concomitant]
  7. ALLOPURINOL [Concomitant]
  8. COREG [Concomitant]

REACTIONS (2)
  - APPLICATION SITE BURN [None]
  - CAUSTIC INJURY [None]
